FAERS Safety Report 8266137-4 (Version None)
Quarter: 2012Q2

REPORT INFORMATION
  Report Type: 
  Country: None (occurrence: None)
  Receive Date: 20120406
  Receipt Date: 20120402
  Transmission Date: 20120825
  Serious: Yes (Other)
  Sender: FDA-Public Use
  Company Number: PHHY2012JP029136

PATIENT
  Sex: Male
  Weight: 51 kg

DRUGS (4)
  1. NEORAL [Concomitant]
     Indication: MYELODYSPLASTIC SYNDROME
     Dosage: 100 UG,
     Dates: start: 20080801
  2. RED BLOOD CELLS, CONCENTRATED [Concomitant]
     Dosage: 4E UNITS EVERY 4 WEEKS
     Dates: start: 20080801, end: 20091101
  3. RED BLOOD CELLS, CONCENTRATED [Concomitant]
     Dosage: 4E UNITS EVERY 4 WEEKS
     Dates: start: 20100701, end: 20110101
  4. EXJADE [Suspect]
     Indication: MYELODYSPLASTIC SYNDROME
     Dosage: 500 MG, DAILY
     Route: 048
     Dates: start: 20101208, end: 20110127

REACTIONS (2)
  - MALAISE [None]
  - MALIGNANT MELANOMA [None]
